FAERS Safety Report 6206908-9 (Version None)
Quarter: 2009Q2

REPORT INFORMATION
  Report Type: 
  Country: None (occurrence: None)
  Receive Date: 20090528
  Receipt Date: 20090515
  Transmission Date: 20091009
  Serious: Yes (Hospitalization)
  Sender: FDA-Public Use
  Company Number: A0774923A

PATIENT
  Age: 76 Year
  Sex: Male
  Weight: 88.6 kg

DRUGS (5)
  1. AVANDIA [Suspect]
     Dosage: 8MG PER DAY
     Route: 048
     Dates: start: 20050601, end: 20070601
  2. AVANDAMET [Suspect]
     Route: 048
     Dates: start: 20000101, end: 20050630
  3. METFORMIN HCL [Concomitant]
  4. AMARYL [Concomitant]
  5. MULTI-VITAMIN [Concomitant]

REACTIONS (3)
  - CARDIAC FAILURE CONGESTIVE [None]
  - MYOCARDIAL INFARCTION [None]
  - MYOCARDIAL ISCHAEMIA [None]
